FAERS Safety Report 11497465 (Version 2)
Quarter: 2015Q3

REPORT INFORMATION
  Report Type: Report from Study
  Country: US (occurrence: None)
  Receive Date: 20150911
  Receipt Date: 20150917
  Transmission Date: 20151125
  Serious: Yes (Other)
  Sender: FDA-Public Use
  Company Number: ADR-2015-01474

PATIENT
  Age: 57 Year
  Sex: Male

DRUGS (2)
  1. MORPHINE INTRATHECAL 10MG/ML [Suspect]
     Active Substance: MORPHINE
     Indication: PAIN
     Dosage: 2.249 MG/DAY
  2. COMPOUND BACLOFEN INTRATHECAL 250MCG/ML [Suspect]
     Active Substance: BACLOFEN
     Indication: PAIN
     Dosage: 56.23 MCG/DAY

REACTIONS (2)
  - Stitch abscess [None]
  - Somnolence [None]
